FAERS Safety Report 21422236 (Version 1)
Quarter: 2022Q4

REPORT INFORMATION
  Report Type: Spontaneous
  Country: US (occurrence: None)
  Receive Date: 20221006
  Receipt Date: 20221006
  Transmission Date: 20230112
  Serious: No
  Sender: FDA-Public Use
  Company Number: None

PATIENT
  Age: 57 Year
  Sex: Male
  Weight: 87.75 kg

DRUGS (1)
  1. BUPROPION [Suspect]
     Active Substance: BUPROPION
     Indication: Depersonalisation/derealisation disorder
     Dates: start: 20220101, end: 20220316

REACTIONS (6)
  - Product quality issue [None]
  - Asthenia [None]
  - Disturbance in attention [None]
  - Feeling abnormal [None]
  - Product substitution issue [None]
  - Drug ineffective [None]
